FAERS Safety Report 16175576 (Version 2)
Quarter: 2019Q4

REPORT INFORMATION
  Report Type: Report from Study
  Country: US (occurrence: MX)
  Receive Date: 20190409
  Receipt Date: 20191014
  Transmission Date: 20200122
  Serious: Yes (Hospitalization, Other)
  Sender: FDA-Public Use
  Company Number: US-SUNOVION-2019SUN001319

PATIENT
  Sex: Male
  Weight: 64 kg

DRUGS (11)
  1. INDACATEROL AND GLYCOPYRROLATE [Suspect]
     Active Substance: GLYCOPYRROLATE\INDACATEROL MALEATE
     Indication: CHRONIC OBSTRUCTIVE PULMONARY DISEASE
     Dosage: 1 DF, QD
     Route: 055
  2. OMALIZUMAB. [Concomitant]
     Active Substance: OMALIZUMAB
     Indication: PRODUCT USED FOR UNKNOWN INDICATION
     Route: 065
  3. INDACATEROL [Suspect]
     Active Substance: INDACATEROL
     Indication: CHRONIC OBSTRUCTIVE PULMONARY DISEASE
     Dosage: 1 DF, QD ((STARTED APPROXIMATELY 1 MONTH AGO))
     Route: 055
  4. LYSOMUCIL [Concomitant]
     Active Substance: ACETYLCYSTEINE
     Indication: PRODUCT USED FOR UNKNOWN INDICATION
     Dosage: 1 DF, Q8H (STARTED 4 YEARS AGO)
     Route: 048
  5. TEOFILIN [Concomitant]
     Active Substance: THEOPHYLLINE ANHYDROUS
     Indication: PRODUCTIVE COUGH
     Dosage: 2 DF, QD (STARTED 2 YEARS AGO)
     Route: 048
  6. MIFLONIDE [Suspect]
     Active Substance: BUDESONIDE
     Indication: CHRONIC OBSTRUCTIVE PULMONARY DISEASE
     Dosage: 1 DF, QD (STARTED 8 YEARS AGO)
     Route: 055
  7. COMBIVENT [Concomitant]
     Active Substance: ALBUTEROL SULFATE\IPRATROPIUM BROMIDE
     Indication: CHRONIC OBSTRUCTIVE PULMONARY DISEASE
     Dosage: (STARTED 8 YEARS AGO) , PRN
     Route: 055
  8. RIBUSPIR [Concomitant]
     Indication: CHRONIC OBSTRUCTIVE PULMONARY DISEASE
     Dosage: 1 DF, Q12H (STARTED MORE THAN 2 YEARS AGO)
     Route: 055
  9. TELMISARTAN/HYDROCHLOROTHIAZIDE [Concomitant]
     Active Substance: HYDROCHLOROTHIAZIDE\TELMISARTAN
     Indication: HYPERTENSION
     Dosage: (1/4), QD (STARTED 15 YEARS AGO)
     Route: 048
  10. OXYGEN. [Concomitant]
     Active Substance: OXYGEN
     Indication: CHRONIC OBSTRUCTIVE PULMONARY DISEASE
     Dosage: QHS (STARTED 2 YEARS AGO)
     Route: 055
  11. SPIOLTO RESPIMAT [Concomitant]
     Active Substance: OLODATEROL HYDROCHLORIDE\TIOTROPIUM BROMIDE MONOHYDRATE
     Indication: CHRONIC OBSTRUCTIVE PULMONARY DISEASE
     Dosage: (1 SHOT), QD
     Route: 055

REACTIONS (12)
  - Vocal cord paralysis [Not Recovered/Not Resolved]
  - Deafness neurosensory [Not Recovered/Not Resolved]
  - Reflux gastritis [Not Recovered/Not Resolved]
  - Infective exacerbation of chronic obstructive airways disease [Recovered/Resolved]
  - Ill-defined disorder [Unknown]
  - Tracheal injury [Unknown]
  - Tracheomalacia [Not Recovered/Not Resolved]
  - Hypersensitivity [Not Recovered/Not Resolved]
  - Asthenia [Unknown]
  - Agitation [Unknown]
  - Infection [Unknown]
  - Product use issue [Unknown]

NARRATIVE: CASE EVENT DATE: 2017
